FAERS Safety Report 23788707 (Version 2)
Quarter: 2024Q2

REPORT INFORMATION
  Report Type: Spontaneous
  Country: EG (occurrence: EG)
  Receive Date: 20240426
  Receipt Date: 20240508
  Transmission Date: 20240716
  Serious: Yes (Other)
  Sender: FDA-Public Use
  Company Number: EG-NOVOPROD-1197773

PATIENT
  Age: 704 Month
  Sex: Male

DRUGS (6)
  1. INSULIN ASPART [Suspect]
     Active Substance: INSULIN ASPART
     Dosage: 95 IU, QD (40+30+25 IU PER EACH MEAL)
     Route: 058
  2. INSULIN ASPART [Suspect]
     Active Substance: INSULIN ASPART
     Indication: Type 1 diabetes mellitus
     Dosage: 56 IU, QD(30U MORNING AFTER BREAKFAST-16U AT LUNCH-10U AT NIGHT)
     Route: 058
     Dates: start: 2017
  3. ATOREZA [Concomitant]
     Indication: Blood cholesterol abnormal
     Dosage: ONCE DAILY
     Route: 048
  4. BENFOTIAMINE\CYANOCOBALAMIN\PYRIDOXINE HYDROCHLORIDE [Concomitant]
     Active Substance: BENFOTIAMINE\CYANOCOBALAMIN\PYRIDOXINE HYDROCHLORIDE
     Indication: Neuropathy peripheral
     Dosage: ONCE DAILY
     Route: 048
  5. SOLO FRESH [Concomitant]
     Indication: Dry eye
     Dosage: 3 TIMES DAILY
     Route: 031
  6. COSOPT [Concomitant]
     Active Substance: DORZOLAMIDE HYDROCHLORIDE\TIMOLOL MALEATE
     Indication: Intraocular pressure increased
     Dosage: UNK
     Route: 031

REACTIONS (20)
  - Nasal septum disorder [Not Recovered/Not Resolved]
  - Dyspnoea [Not Recovered/Not Resolved]
  - Hyperglycaemia [Not Recovered/Not Resolved]
  - Arthralgia [Not Recovered/Not Resolved]
  - Dizziness [Not Recovered/Not Resolved]
  - Constipation [Not Recovered/Not Resolved]
  - COVID-19 [Recovered/Resolved]
  - Abdominal pain [Not Recovered/Not Resolved]
  - Pneumonia [Recovered/Resolved]
  - Flatulence [Not Recovered/Not Resolved]
  - Dry throat [Not Recovered/Not Resolved]
  - Asthenia [Not Recovered/Not Resolved]
  - Headache [Not Recovered/Not Resolved]
  - Vision blurred [Not Recovered/Not Resolved]
  - Tension [Not Recovered/Not Resolved]
  - Urinary retention [Not Recovered/Not Resolved]
  - Urine odour abnormal [Not Recovered/Not Resolved]
  - Myalgia [Not Recovered/Not Resolved]
  - Neuropathy peripheral [Not Recovered/Not Resolved]
  - Drug ineffective [Unknown]

NARRATIVE: CASE EVENT DATE: 20170101
